FAERS Safety Report 8930733 (Version 6)
Quarter: 2016Q4

REPORT INFORMATION
  Report Type: Spontaneous
  Country: US (occurrence: US)
  Receive Date: 20121128
  Receipt Date: 20161115
  Transmission Date: 20170207
  Serious: Yes (Hospitalization, Disabling, Other)
  Sender: FDA-Public Use
  Company Number: US-MERCK-1211USA008155

PATIENT
  Sex: Female

DRUGS (4)
  1. PRAVASTATIN SODIUM. [Concomitant]
     Active Substance: PRAVASTATIN SODIUM
     Indication: BLOOD CHOLESTEROL INCREASED
     Dosage: UNK
     Route: 048
     Dates: start: 1970
  2. ALENDRONATE SODIUM. [Suspect]
     Active Substance: ALENDRONATE SODIUM
     Indication: OSTEOPOROSIS
     Dosage: 70 MG, QW
     Route: 048
     Dates: start: 20080911, end: 20091019
  3. LEVOTHYROXINE SODIUM. [Concomitant]
     Active Substance: LEVOTHYROXINE SODIUM
     Indication: HORMONE LEVEL ABNORMAL
     Dosage: 25 MG, UNK
     Route: 048
     Dates: start: 1970
  4. FOSAMAX [Suspect]
     Active Substance: ALENDRONATE SODIUM
     Indication: OSTEOPOROSIS
     Dosage: 70 MG, QW
     Route: 048
     Dates: start: 20010504, end: 20081020

REACTIONS (17)
  - Open reduction of fracture [Unknown]
  - Spinal osteoarthritis [Unknown]
  - Pain in extremity [Unknown]
  - Femur fracture [Unknown]
  - Peripheral swelling [Unknown]
  - Femur fracture [Unknown]
  - Osteoporosis [Unknown]
  - Cataract [Unknown]
  - Haemorrhage [Unknown]
  - Low turnover osteopathy [Not Recovered/Not Resolved]
  - Tooth disorder [Unknown]
  - Osteoarthritis [Unknown]
  - Arthropathy [Unknown]
  - Multiple fractures [Unknown]
  - Gallbladder disorder [Unknown]
  - Fall [Unknown]
  - Cellulitis [Unknown]

NARRATIVE: CASE EVENT DATE: 20040719
